FAERS Safety Report 5884659-8 (Version None)
Quarter: 2008Q3

REPORT INFORMATION
  Report Type: 
  Country: None (occurrence: None)
  Receive Date: 20080916
  Receipt Date: 20080912
  Transmission Date: 20090109
  Serious: Yes (Hospitalization)
  Sender: FDA-Public Use
  Company Number: FR-BRISTOL-MYERS SQUIBB COMPANY-14200802

PATIENT
  Age: 83 Year
  Sex: Female

DRUGS (4)
  1. SPRYCEL [Suspect]
     Indication: CHRONIC MYELOID LEUKAEMIA
     Route: 048
     Dates: start: 20070802
  2. ARANESP [Suspect]
     Indication: CHRONIC MYELOID LEUKAEMIA
     Route: 058
     Dates: start: 20060111
  3. ARANESP [Suspect]
     Indication: ANAEMIA OF MALIGNANT DISEASE
     Route: 058
     Dates: start: 20060111
  4. ASPIRIN [Concomitant]
     Dates: start: 20070501

REACTIONS (2)
  - DEEP VEIN THROMBOSIS [None]
  - THROMBOPHLEBITIS [None]
